FAERS Safety Report 6704050-1 (Version None)
Quarter: 2010Q2

REPORT INFORMATION
  Report Type: 
  Country: None (occurrence: None)
  Receive Date: 20100430
  Receipt Date: 20100426
  Transmission Date: 20101027
  Serious: Yes (Other)
  Sender: FDA-Public Use
  Company Number: US-BAYER-201014100NA

PATIENT
  Age: 52 Year
  Sex: Female
  Weight: 84 kg

DRUGS (1)
  1. MAGNEVIST [Suspect]
     Indication: NUCLEAR MAGNETIC RESONANCE IMAGING BRAIN
     Dosage: LEFT ANTECUBITAL HAND INJECTED WITH 23 GAUGE BUTTERFLY
     Dates: start: 20100204, end: 20100204

REACTIONS (3)
  - COUGH [None]
  - ERYTHEMA [None]
  - THROAT IRRITATION [None]
